FAERS Safety Report 13064043 (Version 2)
Quarter: 2017Q1

REPORT INFORMATION
  Report Type: Spontaneous
  Country: US (occurrence: US)
  Receive Date: 20161227
  Receipt Date: 20170116
  Transmission Date: 20170428
  Serious: No
  Sender: FDA-Public Use
  Company Number: US-PFIZER INC-2016596530

PATIENT
  Sex: Female

DRUGS (2)
  1. ADVIL PM [Suspect]
     Active Substance: DIPHENHYDRAMINE CITRATE\IBUPROFEN
     Dosage: 3 DF, DAILY (THREE PILLS AT NIGHT)
  2. ADVIL PM [Suspect]
     Active Substance: DIPHENHYDRAMINE CITRATE\IBUPROFEN
     Dosage: HALF OF ONE OR LESS THAN ONE

REACTIONS (3)
  - Pruritus generalised [Recovered/Resolved]
  - Intentional product misuse [Unknown]
  - Burning sensation [Recovered/Resolved]
